FAERS Safety Report 8832229 (Version 1)
Quarter: 2012Q4

REPORT INFORMATION
  Report Type: 
  Country: ES (occurrence: ES)
  Receive Date: 20121009
  Receipt Date: 20121009
  Transmission Date: 20130627
  Serious: Yes (Other)
  Sender: FDA-Public Use
  Company Number: ES-BRISTOL-MYERS SQUIBB COMPANY-17019928

PATIENT
  Age: 2 Month
  Sex: Female
  Weight: 5 kg

DRUGS (2)
  1. ABILIFY [Suspect]
     Route: 064
  2. SERTRALINE [Suspect]
     Dosage: 1df:50 Unit NOS
     Route: 064

REACTIONS (1)
  - Foetal macrosomia [Unknown]
